FAERS Safety Report 6048161-5 (Version None)
Quarter: 2009Q1

REPORT INFORMATION
  Report Type: 
  Country: None (occurrence: None)
  Receive Date: 20090123
  Receipt Date: 20090113
  Transmission Date: 20090719
  Serious: Yes (Hospitalization)
  Sender: FDA-Public Use
  Company Number: US-BIOGENIDEC-2008BI021497

PATIENT
  Age: 39 Year
  Sex: Female
  Weight: 52 kg

DRUGS (9)
  1. TYSABRI [Suspect]
     Indication: MULTIPLE SCLEROSIS
     Route: 042
     Dates: start: 20061127, end: 20080714
  2. EFFEXOR [Concomitant]
     Route: 048
  3. GABAPENTIN [Concomitant]
     Route: 048
  4. PHENERGAN HCL [Concomitant]
     Route: 048
  5. OXYBUTYNIN CHLORIDE ER [Concomitant]
     Route: 048
  6. BACLOFEN [Concomitant]
     Route: 048
  7. LIPITOR [Concomitant]
     Route: 048
  8. SEPTRA DS [Concomitant]
     Route: 048
  9. MIDRIN [Concomitant]
     Route: 048

REACTIONS (1)
  - STATUS EPILEPTICUS [None]
